FAERS Safety Report 11930701 (Version 3)
Quarter: 2017Q2

REPORT INFORMATION
  Report Type: Spontaneous
  Country: US (occurrence: US)
  Receive Date: 20160120
  Receipt Date: 20170519
  Transmission Date: 20170829
  Serious: Yes (Death, Hospitalization)
  Sender: FDA-Public Use
  Company Number: US-INCYTE CORPORATION-2015IN003818

PATIENT

DRUGS (1)
  1. JAKAFI [Suspect]
     Active Substance: RUXOLITINIB
     Indication: MYELOFIBROSIS
     Dosage: 10 MG, BID
     Route: 048
     Dates: start: 20150404, end: 20150408

REACTIONS (8)
  - Bacteraemia [Fatal]
  - Incisional hernia [Unknown]
  - Stem cell transplant [Unknown]
  - Renal aneurysm [Unknown]
  - Escherichia infection [Fatal]
  - Sepsis [Fatal]
  - Perirenal haematoma [Unknown]
  - Incision site infection [Not Recovered/Not Resolved]

NARRATIVE: CASE EVENT DATE: 20150804
